FAERS Safety Report 7733235-0 (Version None)
Quarter: 2011Q3

REPORT INFORMATION
  Report Type: 
  Country: None (occurrence: None)
  Receive Date: 20110902
  Receipt Date: 20110902
  Transmission Date: 20111222
  Serious: Yes (Other)
  Sender: FDA-Public Use
  Company Number: None

PATIENT
  Sex: Female
  Weight: 63.05 kg

DRUGS (1)
  1. SULFAMETHOXAZOLE AND TRIMETHOPRIM [Suspect]
     Indication: SINUSITIS
     Dosage: 1 TAB. 2 TIMES A DAY 10 DAYS
     Dates: start: 20110726, end: 20110729

REACTIONS (3)
  - RASH PRURITIC [None]
  - RASH GENERALISED [None]
  - SWOLLEN TONGUE [None]
